FAERS Safety Report 21179901 (Version 1)
Quarter: 2022Q3

REPORT INFORMATION
  Report Type: Spontaneous
  Country: US (occurrence: None)
  Receive Date: 20220805
  Receipt Date: 20220805
  Transmission Date: 20221026
  Serious: Yes (Life-Threatening, Hospitalization)
  Sender: FDA-Public Use
  Company Number: None

PATIENT
  Age: 60 Year
  Sex: Female
  Weight: 85.95 kg

DRUGS (8)
  1. LISINOPRIL [Suspect]
     Active Substance: LISINOPRIL
     Indication: Blood pressure measurement
     Route: 048
     Dates: start: 20220726, end: 20220729
  2. DEVICE [Concomitant]
     Active Substance: DEVICE
  3. BIPAP SLEEP APNEA MACHINE [Concomitant]
  4. LISINOPRIL [Concomitant]
     Active Substance: LISINOPRIL
  5. VITAMIN D NOS [Concomitant]
     Active Substance: VITAMIN D NOS
  6. IRON [Concomitant]
     Active Substance: IRON
  7. Viactiv [Concomitant]
  8. Occuvite with letein [Concomitant]

REACTIONS (8)
  - Syncope [None]
  - Dyspnoea [None]
  - Dizziness [None]
  - Back pain [None]
  - Atrioventricular block complete [None]
  - Therapy interrupted [None]
  - Fatigue [None]
  - Somnolence [None]

NARRATIVE: CASE EVENT DATE: 20220728
